FAERS Safety Report 9531438 (Version 4)
Quarter: 2013Q4

REPORT INFORMATION
  Report Type: Spontaneous
  Country: US (occurrence: US)
  Receive Date: 20130918
  Receipt Date: 20131108
  Transmission Date: 20140711
  Serious: Yes (Other)
  Sender: FDA-Public Use
  Company Number: US-UCBSA-097701

PATIENT
  Age: 70 Year
  Sex: Female
  Weight: 97.51 kg

DRUGS (8)
  1. CIMZIA [Suspect]
     Indication: RHEUMATOID ARTHRITIS
     Dosage: ??/OCT/2014, ??/DEC/2013, ??/MAY/2013, ??/JUL/2013, ??/JAN/2014
     Route: 058
     Dates: start: 2011, end: 2012
  2. CIMZIA [Suspect]
     Indication: RHEUMATOID ARTHRITIS
     Dosage: ??/OCT/2014
     Route: 058
     Dates: start: 2011, end: 2012
  3. ENBREL [Suspect]
     Indication: RHEUMATOID ARTHRITIS
     Route: 058
     Dates: start: 2002, end: 2011
  4. CELEBREX [Suspect]
     Indication: ARTHRALGIA
     Dosage: STARTED IN 2001 OR 2002
     Route: 048
     Dates: end: 201211
  5. CELEBREX [Suspect]
     Indication: RHEUMATOID ARTHRITIS
     Dosage: STARTED IN 2001 OR 2002
     Route: 048
     Dates: end: 201211
  6. PREMARIN [Suspect]
     Route: 048
     Dates: end: 201211
  7. REMICADE [Suspect]
     Indication: RHEUMATOID ARTHRITIS
     Route: 042
     Dates: start: 2000, end: 2002
  8. METHOTREXATE [Concomitant]
     Dates: start: 2000, end: 2012

REACTIONS (4)
  - B-cell lymphoma [Not Recovered/Not Resolved]
  - Lymphoma [Unknown]
  - Pain [Unknown]
  - Arthralgia [Unknown]
